FAERS Safety Report 15136078 (Version 3)
Quarter: 2018Q4

REPORT INFORMATION
  Report Type: Report from Study
  Country: GB (occurrence: GB)
  Receive Date: 20180712
  Receipt Date: 20181228
  Transmission Date: 20190204
  Serious: Yes (Death, Other)
  Sender: FDA-Public Use
  Company Number: GB-UCBSA-2018030499

PATIENT
  Age: 69 Year
  Sex: Female
  Weight: 59 kg

DRUGS (2)
  1. CERTOLIZUMAB PEGOL RA [Suspect]
     Active Substance: CERTOLIZUMAB PEGOL
     Indication: RHEUMATOID ARTHRITIS
     Dosage: UNK
     Route: 058
     Dates: start: 20160802, end: 20160915
  2. SULPHASALAZINE [Concomitant]
     Active Substance: SULFASALAZINE
     Indication: RHEUMATOID ARTHRITIS
     Dosage: UNK

REACTIONS (2)
  - Death [Fatal]
  - Squamous cell carcinoma [Unknown]

NARRATIVE: CASE EVENT DATE: 20180308
